FAERS Safety Report 7035493-7 (Version None)
Quarter: 2010Q4

REPORT INFORMATION
  Report Type: 
  Country: None (occurrence: None)
  Receive Date: 20101008
  Receipt Date: 20101006
  Transmission Date: 20110411
  Serious: Yes (Hospitalization)
  Sender: FDA-Public Use
  Company Number: IT-PFIZER INC-2010123390

PATIENT
  Age: 39 Year
  Sex: Male

DRUGS (1)
  1. MEDROL [Suspect]
     Dosage: 4 MG, 1X/DAY
     Route: 048
     Dates: start: 20100430, end: 20100430

REACTIONS (2)
  - ANGIOEDEMA [None]
  - ERYTHEMA [None]
